FAERS Safety Report 21077399 (Version 1)
Quarter: 2022Q3

REPORT INFORMATION
  Report Type: Report from Study
  Country: GB (occurrence: GB)
  Receive Date: 20220713
  Receipt Date: 20220713
  Transmission Date: 20221027
  Serious: Yes (Life-Threatening, Hospitalization)
  Sender: FDA-Public Use
  Company Number: GB-MYLANLABS-2022M1078020

PATIENT
  Age: 54 Year
  Sex: Male

DRUGS (1)
  1. TENOFOVIR DISOPROXIL [Suspect]
     Active Substance: TENOFOVIR DISOPROXIL
     Indication: Hepatitis B
     Dosage: UNK
     Route: 065

REACTIONS (5)
  - Hepatic encephalopathy [Recovered/Resolved]
  - Asterixis [Recovered/Resolved]
  - Hepatic cytolysis [Recovered/Resolved]
  - Hepatitis B [Recovered/Resolved]
  - Rebound effect [Recovered/Resolved]
